FAERS Safety Report 19269842 (Version 1)
Quarter: 2021Q2

REPORT INFORMATION
  Report Type: Spontaneous
  Country: JP (occurrence: JP)
  Receive Date: 20210518
  Receipt Date: 20210518
  Transmission Date: 20210717
  Serious: Yes (Hospitalization, Other)
  Sender: FDA-Public Use
  Company Number: JP-GLAXOSMITHKLINE-JP2021JPN101650

PATIENT
  Age: 57 Year
  Sex: Male

DRUGS (4)
  1. DUPILUMAB [Concomitant]
     Active Substance: DUPILUMAB
     Indication: ASTHMA
  2. MEPOLIZUMAB [Suspect]
     Active Substance: MEPOLIZUMAB
     Indication: ASTHMA
     Dosage: UNK
     Route: 058
  3. FAVIPIRAVIR [Concomitant]
     Active Substance: FAVIPIRAVIR
     Indication: COVID-19 PNEUMONIA
     Route: 048
  4. RELVAR ELLIPTA [Suspect]
     Active Substance: FLUTICASONE FUROATE\VILANTEROL TRIFENATATE
     Indication: ASTHMA
     Dosage: 200 UG, 1D
     Route: 055

REACTIONS (5)
  - Hypoxia [Recovered/Resolved]
  - Pyrexia [Recovered/Resolved]
  - COVID-19 pneumonia [Recovered/Resolved]
  - Dyspnoea [Recovered/Resolved]
  - Pruritus [Recovered/Resolved]
